FAERS Safety Report 5045433-8 (Version None)
Quarter: 2006Q3

REPORT INFORMATION
  Report Type: 
  Country: None (occurrence: None)
  Receive Date: 20060707
  Receipt Date: 20060628
  Transmission Date: 20061208
  Serious: Yes (Hospitalization)
  Sender: FDA-Public Use
  Company Number: US-AVENTIS-200615548US

PATIENT
  Sex: Female
  Weight: 81.81 kg

DRUGS (2)
  1. ALLEGRA-D - SLOW RELEASE [Suspect]
     Indication: SEASONAL ALLERGY
     Dosage: DOSE: UNK
     Route: 048
  2. MIRCETTE [Suspect]
     Indication: CONTRACEPTION
     Dosage: DOSE: UNK

REACTIONS (6)
  - APHASIA [None]
  - APRAXIA [None]
  - CEREBROVASCULAR ACCIDENT [None]
  - GAIT DISTURBANCE [None]
  - HYPOAESTHESIA [None]
  - MUSCULAR WEAKNESS [None]
